FAERS Safety Report 11009606 (Version 1)
Quarter: 2015Q2

REPORT INFORMATION
  Report Type: Spontaneous
  Country: DE (occurrence: DE)
  Receive Date: 20150410
  Receipt Date: 20150410
  Transmission Date: 20150821
  Serious: Yes (Hospitalization, Other)
  Sender: FDA-Public Use
  Company Number: DE-GILEAD-2015-0138402

PATIENT
  Age: 67 Year
  Sex: Female
  Weight: 69 kg

DRUGS (2)
  1. SOVALDI [Suspect]
     Active Substance: SOFOSBUVIR
     Indication: CHRONIC HEPATITIS C
     Dosage: 400 MG, UNK
     Route: 048
     Dates: start: 20150128, end: 20150218
  2. OLYSIO [Concomitant]
     Active Substance: SIMEPREVIR
     Indication: CHRONIC HEPATITIS C
     Dosage: 150 MG, UNK
     Route: 048
     Dates: start: 20150128, end: 20150218

REACTIONS (3)
  - Metastases to central nervous system [Unknown]
  - Dizziness [Not Recovered/Not Resolved]
  - Metastatic malignant melanoma [Unknown]

NARRATIVE: CASE EVENT DATE: 20150215
